FAERS Safety Report 4551863-0 (Version None)
Quarter: 2005Q1

REPORT INFORMATION
  Report Type: 
  Country: None (occurrence: None)
  Receive Date: 20050113
  Receipt Date: 20030430
  Transmission Date: 20050727
  Serious: Yes (Death, Life-Threatening, Hospitalization)
  Sender: FDA-Public Use
  Company Number: FR-ABBOTT-03P-056-0218066-00

PATIENT
  Sex: Female

DRUGS (11)
  1. HUMIRA [Suspect]
     Indication: RHEUMATOID ARTHRITIS
     Dosage: 40 MG
     Route: 058
     Dates: start: 20030312, end: 20030410
  2. LEFLUNOMIDE [Concomitant]
     Indication: RHEUMATOID ARTHRITIS
     Route: 048
     Dates: start: 20020426, end: 20030226
  3. PREDNISONE [Concomitant]
     Indication: RHEUMATOID ARTHRITIS
     Route: 048
     Dates: start: 20000921, end: 20030501
  4. PREDNISONE [Concomitant]
     Route: 048
     Dates: start: 20030423, end: 20030501
  5. CELECOXIB [Concomitant]
     Indication: RHEUMATOID ARTHRITIS
     Route: 048
     Dates: start: 20010122, end: 20030501
  6. OMEPRAZOLE [Concomitant]
     Indication: PROPHYLAXIS AGAINST GASTROINTESTINAL ULCER
     Route: 048
     Dates: start: 19981001, end: 20030501
  7. DILTIAZEM HYDROCHLORIDE [Concomitant]
     Indication: ANGINA PECTORIS
     Route: 048
     Dates: start: 20030201, end: 20030501
  8. IRBESARTAN [Concomitant]
     Indication: HYPERTENSION
     Route: 048
     Dates: start: 20010801, end: 20030501
  9. BROMAZEPAM [Concomitant]
     Indication: ANXIETY
     Route: 048
     Dates: start: 19990101, end: 20030501
  10. CETIRIZINE HCL [Concomitant]
     Indication: HYPERSENSITIVITY
     Route: 048
     Dates: start: 20030423, end: 20030501
  11. LEFLUNOMIDE [Concomitant]
     Indication: DRUG USE FOR UNKNOWN INDICATION
     Dates: start: 20020401, end: 20030201

REACTIONS (12)
  - ACIDOSIS [None]
  - CYTOLYTIC HEPATITIS [None]
  - DIALYSIS [None]
  - DYSPNOEA [None]
  - HYPOXIA [None]
  - MOVEMENT DISORDER [None]
  - NECROTISING FASCIITIS STREPTOCOCCAL [None]
  - PATHOGEN RESISTANCE [None]
  - RENAL FAILURE [None]
  - RHABDOMYOLYSIS [None]
  - SEPTIC SHOCK [None]
  - THROMBOSIS [None]
